FAERS Safety Report 7928576-8 (Version None)
Quarter: 2011Q4

REPORT INFORMATION
  Report Type: 
  Country: None (occurrence: None)
  Receive Date: 20111118
  Receipt Date: 20111110
  Transmission Date: 20120403
  Serious: Yes (Other)
  Sender: FDA-Public Use
  Company Number: US-JNJFOC-20110706507

PATIENT
  Sex: Male
  Weight: 73.48 kg

DRUGS (3)
  1. IMURAN [Concomitant]
     Indication: COLITIS ULCERATIVE
  2. COLAZAL [Concomitant]
     Indication: COLITIS ULCERATIVE
  3. REMICADE [Suspect]
     Indication: COLITIS ULCERATIVE
     Route: 042
     Dates: start: 20110301, end: 20110705

REACTIONS (5)
  - HYPERHIDROSIS [None]
  - FEELING COLD [None]
  - DIZZINESS [None]
  - PRESYNCOPE [None]
  - INFUSION RELATED REACTION [None]
